FAERS Safety Report 5530763-3 (Version None)
Quarter: 2007Q4

REPORT INFORMATION
  Report Type: 
  Country: None (occurrence: None)
  Receive Date: 20071130
  Receipt Date: 20071120
  Transmission Date: 20080405
  Serious: Yes (Death, Life-Threatening, Hospitalization)
  Sender: FDA-Public Use
  Company Number: FR-ELI_LILLY_AND_COMPANY-FR200610001839

PATIENT
  Sex: Male
  Weight: 69 kg

DRUGS (4)
  1. ALIMTA [Suspect]
     Indication: PLEURAL MESOTHELIOMA MALIGNANT
     Dosage: 885 MG, OTHER
     Route: 042
     Dates: start: 20060925
  2. FOLIC ACID [Concomitant]
     Indication: VITAMIN SUPPLEMENTATION
  3. VITAMIN B-12 [Concomitant]
     Indication: VITAMIN SUPPLEMENTATION
  4. DEXAMETHASONE [Concomitant]
     Indication: PROPHYLAXIS

REACTIONS (2)
  - RESPIRATORY DISTRESS [None]
  - SEPTIC SHOCK [None]
